FAERS Safety Report 21597047 (Version 1)
Quarter: 2022Q4

REPORT INFORMATION
  Report Type: Spontaneous
  Country: US (occurrence: US)
  Receive Date: 20221115
  Receipt Date: 20221115
  Transmission Date: 20230113
  Serious: No
  Sender: FDA-Public Use
  Company Number: US-AMNEAL PHARMACEUTICALS-2022-AMRX-00662

PATIENT
  Sex: Male

DRUGS (2)
  1. ISOTRETINOIN [Suspect]
     Active Substance: ISOTRETINOIN
     Indication: Product used for unknown indication
     Dosage: 30 MILLIGRAM, BID, CAPSULE
     Route: 065
  2. MUPIROCIN [Concomitant]
     Active Substance: MUPIROCIN
     Indication: Product used for unknown indication
     Dosage: 2 PERCENT
     Route: 061

REACTIONS (9)
  - Xerosis [Unknown]
  - Mood altered [Unknown]
  - Headache [Unknown]
  - Vision blurred [Unknown]
  - Epistaxis [Unknown]
  - Condition aggravated [Unknown]
  - Cheilitis [Unknown]
  - Depression [Unknown]
  - Myalgia [Unknown]
